FAERS Safety Report 9969004 (Version 1)
Quarter: 2014Q1

REPORT INFORMATION
  Report Type: Report from Study
  Country: US (occurrence: US)
  Receive Date: 20140306
  Receipt Date: 20140306
  Transmission Date: 20141002
  Serious: No
  Sender: FDA-Public Use
  Company Number: US-ABBVIE-13P-163-1142765-00

PATIENT
  Age: 49 Year
  Sex: Female

DRUGS (10)
  1. HUMIRA [Suspect]
     Indication: CROHN^S DISEASE
     Dates: start: 20130619
  2. CARTIA [Concomitant]
     Indication: HYPERTENSION
  3. PANTOPRAZOLE [Concomitant]
     Indication: DYSPEPSIA
  4. CALCIUM [Concomitant]
     Indication: MINERAL SUPPLEMENTATION
  5. MULTIVITAMIN [Concomitant]
     Indication: VITAMIN SUPPLEMENTATION
     Dosage: DAILY
  6. BABY ASPIRIN [Concomitant]
     Indication: PROCOAGULANT THERAPY
     Dosage: DAILY
  7. ANTI-DIARRHEALS [Concomitant]
     Indication: DIARRHOEA
  8. XANAX [Concomitant]
     Indication: ANXIETY
  9. ALLERGY PILL [Concomitant]
     Indication: HYPERSENSITIVITY
  10. TYLENOL [Concomitant]
     Indication: PRODUCT USED FOR UNKNOWN INDICATION

REACTIONS (6)
  - Fatigue [Unknown]
  - Nausea [Unknown]
  - Injection site pain [Not Recovered/Not Resolved]
  - Crohn^s disease [Unknown]
  - Dysuria [Recovered/Resolved]
  - Injection site haemorrhage [Unknown]
